FAERS Safety Report 8383584-0 (Version None)
Quarter: 2012Q1

REPORT INFORMATION
  Report Type: 
  Country: None (occurrence: None)
  Receive Date: 20120323
  Receipt Date: 20110803
  Transmission Date: 20120608
  Serious: Yes (Hospitalization)
  Sender: FDA-Public Use
  Company Number: 163-21880-11032355

PATIENT
  Age: 79 Year
  Sex: Female

DRUGS (4)
  1. REVLIMID [Suspect]
     Indication: MULTIPLE MYELOMA
     Dosage: 5 MG, 1 IN 1 D, PO
     Route: 048
     Dates: start: 20101208
  2. ASPIRIN [Concomitant]
  3. PROTONIX (PATNTOPRAZOLE SODIUM) [Concomitant]
  4. FOLIC ACID [Concomitant]

REACTIONS (2)
  - TACHYCARDIA [None]
  - URINARY TRACT INFECTION [None]
